FAERS Safety Report 12314956 (Version 4)
Quarter: 2017Q3

REPORT INFORMATION
  Report Type: Spontaneous
  Country: JP (occurrence: JP)
  Receive Date: 20160428
  Receipt Date: 20170907
  Transmission Date: 20171127
  Serious: Yes (Other)
  Sender: FDA-Public Use
  Company Number: JP-MALLINCKRODT-T201601377

PATIENT
  Age: 61 Year
  Sex: Male
  Weight: 60 kg

DRUGS (40)
  1. GASTER [Concomitant]
     Active Substance: FAMOTIDINE
     Dosage: UNK
     Route: 042
     Dates: start: 20160202, end: 20160221
  2. OFIRMEV [Suspect]
     Active Substance: ACETAMINOPHEN
     Indication: ANALGESIC THERAPY
     Dosage: 1000 MG
     Route: 042
     Dates: start: 20160222, end: 20160222
  3. SELBEX [Concomitant]
     Active Substance: TEPRENONE
     Indication: PROPHYLAXIS AGAINST GASTROINTESTINAL ULCER
     Dosage: 150 MG
     Route: 048
     Dates: start: 20160223, end: 20160307
  4. MAGMITT [Concomitant]
     Active Substance: MAGNESIUM OXIDE
     Indication: CONSTIPATION
     Dosage: 990 MG
     Route: 048
  5. DIPRIVAN [Concomitant]
     Active Substance: PROPOFOL
     Dosage: UNK
     Route: 042
     Dates: start: 20160222, end: 20160222
  6. LANSOPRAZOLE. [Concomitant]
     Active Substance: LANSOPRAZOLE
     Indication: PEPTIC ULCER
     Dosage: 30 MG
     Route: 042
     Dates: start: 20160131, end: 20160324
  7. VANCOMYCIN [Concomitant]
     Active Substance: VANCOMYCIN
     Indication: DECUBITUS ULCER
     Dosage: 2 G
     Route: 042
     Dates: start: 20160228
  8. TERIBONE [Concomitant]
     Active Substance: TERIPARATIDE ACETATE
     Indication: OSTEOPOROSIS
     Dosage: 56.5 UG
     Route: 058
     Dates: start: 20160302
  9. GASTER [Concomitant]
     Active Substance: FAMOTIDINE
     Dosage: UNK
     Route: 042
     Dates: start: 20160318, end: 20160320
  10. FENTANYL CITRATE. [Concomitant]
     Active Substance: FENTANYL CITRATE
     Dosage: UNK
     Route: 042
     Dates: start: 20160222, end: 20160222
  11. RED CELLS M_A_P(IRRADIATED) [Concomitant]
     Dosage: 560 ML
     Route: 042
     Dates: start: 20160317, end: 20160317
  12. RED CELLS M_A_P(IRRADIATED) [Concomitant]
     Dosage: 560 ML
     Route: 042
     Dates: start: 20160325, end: 20160325
  13. HUMAN SERUM ALBUMIN [Concomitant]
     Active Substance: ALBUMIN HUMAN
     Dosage: 50 ML
     Route: 042
     Dates: start: 20160221, end: 20160225
  14. HUMAN SERUM ALBUMIN [Concomitant]
     Active Substance: ALBUMIN HUMAN
     Dosage: 50 ML
     Route: 042
     Dates: start: 20160318, end: 20160320
  15. OFIRMEV [Suspect]
     Active Substance: ACETAMINOPHEN
     Dosage: 1000 MG
     Route: 042
     Dates: start: 20160323, end: 20160324
  16. METHYCOBAL [Concomitant]
     Active Substance: METHYLCOBALAMIN
     Indication: ANALGESIC THERAPY
     Dosage: 1500 UG
     Route: 048
  17. SENNOSIDE [Concomitant]
     Active Substance: SENNOSIDES
     Indication: CONSTIPATION
     Dosage: 48 MG
     Route: 048
  18. BFLUID [Concomitant]
     Active Substance: AMINO ACIDS\DEXTROSE\ELECTROLYTES NOS\VITAMINS
     Dosage: UNK
     Route: 042
     Dates: start: 20160318, end: 20160320
  19. GASTER [Concomitant]
     Active Substance: FAMOTIDINE
     Dosage: UNK
     Route: 042
     Dates: start: 20160224, end: 20160225
  20. NAUZELIN [Concomitant]
     Active Substance: DOMPERIDONE
     Indication: NAUSEA
     Dosage: 30 MG
     Route: 065
     Dates: start: 20160225
  21. RED CELLS M_A_P(IRRADIATED) [Concomitant]
     Dosage: 840 ML
     Route: 042
     Dates: start: 20160222, end: 20160222
  22. RED CELLS M_A_P(IRRADIATED) [Concomitant]
     Dosage: 280 ML
     Route: 042
     Dates: start: 20160324, end: 20160324
  23. HUMAN SERUM ALBUMIN [Concomitant]
     Active Substance: ALBUMIN HUMAN
     Dosage: 50 ML
     Route: 042
     Dates: start: 20160127, end: 20160128
  24. CALONAL [Concomitant]
     Active Substance: ACETAMINOPHEN
     Indication: ANALGESIC THERAPY
     Dosage: 1000 MG
     Route: 048
     Dates: start: 20160128, end: 20160411
  25. CELECOX [Concomitant]
     Active Substance: CELECOXIB
     Indication: ANALGESIC THERAPY
     Dosage: 200 MG
     Route: 048
     Dates: start: 20160223
  26. EURODIN [Concomitant]
     Indication: INSOMNIA
     Dosage: 2 MG
     Route: 048
  27. HUMULIN R [Concomitant]
     Active Substance: INSULIN HUMAN
     Dosage: UNK
     Route: 042
     Dates: start: 20160202, end: 20160221
  28. HUMULIN R [Concomitant]
     Active Substance: INSULIN HUMAN
     Dosage: UNK
     Route: 042
     Dates: start: 20160224, end: 20160225
  29. VOLTAREN [Concomitant]
     Active Substance: DICLOFENAC SODIUM
     Indication: PAIN
     Dosage: 25 MG
     Route: 054
     Dates: start: 20160222, end: 20160319
  30. DROLEPTAN [Concomitant]
     Active Substance: DROPERIDOL
     Dosage: UNK
     Route: 042
     Dates: start: 20160222, end: 20160222
  31. LYRICA [Concomitant]
     Active Substance: PREGABALIN
     Indication: ANALGESIC THERAPY
     Dosage: 150 MG
     Route: 048
  32. ULTIVA [Concomitant]
     Active Substance: REMIFENTANIL HYDROCHLORIDE
     Dosage: UNK
     Route: 042
     Dates: start: 20160222, end: 20160222
  33. ULTIVA [Concomitant]
     Active Substance: REMIFENTANIL HYDROCHLORIDE
     Dosage: UNK
     Dates: start: 20160317, end: 20160317
  34. DROLEPTAN [Concomitant]
     Active Substance: DROPERIDOL
     Dosage: UNK
     Route: 042
     Dates: start: 20160317, end: 20160317
  35. HUMAN SERUM ALBUMIN [Concomitant]
     Active Substance: ALBUMIN HUMAN
     Dosage: 50 ML
     Route: 042
     Dates: start: 20160324, end: 20160326
  36. BFLUID [Concomitant]
     Active Substance: AMINO ACIDS\DEXTROSE\ELECTROLYTES NOS\VITAMINS
     Indication: EATING DISORDER
     Dosage: UNK
     Route: 042
     Dates: start: 20160202, end: 20160221
  37. BFLUID [Concomitant]
     Active Substance: AMINO ACIDS\DEXTROSE\ELECTROLYTES NOS\VITAMINS
     Dosage: UNK
     Route: 042
     Dates: start: 20160224, end: 20160225
  38. HUMULIN R [Concomitant]
     Active Substance: INSULIN HUMAN
     Dosage: UNK
     Route: 042
     Dates: start: 20160318, end: 20160320
  39. FENTANYL CITRATE. [Concomitant]
     Active Substance: FENTANYL CITRATE
     Dosage: UNK
     Route: 042
     Dates: start: 20160317, end: 20160317
  40. DIPRIVAN [Concomitant]
     Active Substance: PROPOFOL
     Dosage: UNK
     Route: 042
     Dates: start: 20160317, end: 20160317

REACTIONS (1)
  - Pancytopenia [Recovered/Resolved]

NARRATIVE: CASE EVENT DATE: 20160324
